FAERS Safety Report 5553578-9 (Version None)
Quarter: 2007Q4

REPORT INFORMATION
  Report Type: 
  Country: None (occurrence: None)
  Receive Date: 20071213
  Receipt Date: 20071113
  Transmission Date: 20080405
  Serious: No
  Sender: FDA-Public Use
  Company Number: US-BAYER-200715322NA

PATIENT
  Age: 43 Year
  Sex: Male
  Weight: 82 kg

DRUGS (2)
  1. MAGNEVIST 20ML SINGLE USE VIAL [Suspect]
     Indication: NUCLEAR MAGNETIC RESONANCE IMAGING
     Dosage: UNIT DOSE: 20 ML
     Route: 042
     Dates: start: 20071112, end: 20071112
  2. STEROID NOS [Concomitant]
     Indication: PREMEDICATION
     Dates: start: 20071111, end: 20071112

REACTIONS (1)
  - URTICARIA [None]
